FAERS Safety Report 14512730 (Version 1)
Quarter: 2018Q1

REPORT INFORMATION
  Report Type: Spontaneous
  Country: US (occurrence: US)
  Receive Date: 20180209
  Receipt Date: 20180209
  Transmission Date: 20180509
  Serious: No
  Sender: FDA-Public Use
  Company Number: US-ALLERGAN-1710824US

PATIENT
  Age: 77 Year
  Sex: Male

DRUGS (6)
  1. CRESTOR [Concomitant]
     Active Substance: ROSUVASTATIN CALCIUM
     Indication: BLOOD CHOLESTEROL
     Dosage: 20 MG, BID
     Route: 065
  2. GENTEAL MILD [Concomitant]
     Active Substance: HYPROMELLOSE 2910 (4000 MPA.S)
     Indication: DRY EYE
     Dosage: UNK
     Route: 047
  3. ASPIRIN. [Concomitant]
     Active Substance: ASPIRIN
     Indication: ARTERIAL DISORDER
     Dosage: 81 MG, QD
     Route: 048
  4. RESTASIS [Suspect]
     Active Substance: CYCLOSPORINE
     Dosage: 2 GTT, BID
     Route: 047
     Dates: start: 201701
  5. LOSARTAN. [Concomitant]
     Active Substance: LOSARTAN
     Indication: BLOOD PRESSURE MEASUREMENT
     Dosage: 50 MG, UNK
     Route: 048
  6. RESTASIS [Suspect]
     Active Substance: CYCLOSPORINE
     Indication: DRY EYE
     Dosage: 2 GTT, BID
     Route: 047
     Dates: start: 201701

REACTIONS (6)
  - Drug ineffective [Unknown]
  - Vision blurred [Unknown]
  - Diplopia [Unknown]
  - Inappropriate schedule of drug administration [Unknown]
  - Liquid product physical issue [Unknown]
  - Visual impairment [Not Recovered/Not Resolved]

NARRATIVE: CASE EVENT DATE: 201701
